FAERS Safety Report 25007543 (Version 1)
Quarter: 2025Q1

REPORT INFORMATION
  Report Type: Spontaneous
  Country: GB (occurrence: GB)
  Receive Date: 20250225
  Receipt Date: 20250225
  Transmission Date: 20250409
  Serious: Yes (Other)
  Sender: TEVA
  Company Number: GB-MHRA-EMIS-10761-3b9c05d2-559c-4db9-98aa-0d70f99066bc

PATIENT
  Age: 55 Year
  Sex: Male
  Weight: 75 kg

DRUGS (1)
  1. VENLAFAXINE [Suspect]
     Active Substance: VENLAFAXINE HYDROCHLORIDE
     Indication: Product used for unknown indication
     Dosage: DURATION: 4375 DAYS
     Route: 065
     Dates: start: 20080130, end: 20200122

REACTIONS (1)
  - Drug withdrawal syndrome [Not Recovered/Not Resolved]
